FAERS Safety Report 14506713 (Version 1)
Quarter: 2018Q1

REPORT INFORMATION
  Report Type: Spontaneous
  Country: PL (occurrence: PL)
  Receive Date: 20180208
  Receipt Date: 20180208
  Transmission Date: 20180509
  Serious: Yes (Hospitalization)
  Sender: FDA-Public Use
  Company Number: PL-B.I. PHARMACEUTICALS,INC./RIDGEFIELD-2018-12-000380

PATIENT
  Age: 39 Year
  Sex: Male

DRUGS (9)
  1. PRADAXA [Suspect]
     Active Substance: DABIGATRAN ETEXILATE MESYLATE
     Indication: ATRIAL FIBRILLATION
     Dosage: BID FOR 8 WEEKS
     Route: 065
  2. ATORVASTATIN [Suspect]
     Active Substance: ATORVASTATIN
     Indication: ATRIAL FIBRILLATION
     Dosage: 1 DF, QD EVENING
     Route: 065
  3. PROPAFENONE. [Suspect]
     Active Substance: PROPAFENONE
     Indication: ARRHYTHMIA
     Route: 065
  4. BISOPROLOL [Suspect]
     Active Substance: BISOPROLOL
     Indication: ATRIAL FIBRILLATION
     Route: 065
  5. METOPROLOL. [Suspect]
     Active Substance: METOPROLOL
     Indication: ATRIAL FIBRILLATION
     Dosage: 25 MILLIGRAM DAILY; METOPROLOL SUCCINATE 25 MG ONCE DAILY IN COMBINATION WITH PROPAFENONE DOSE OF 15
     Route: 065
  6. PROPAFENONE. [Suspect]
     Active Substance: PROPAFENONE
     Indication: ATRIAL FIBRILLATION
     Dosage: 450 MILLIGRAM DAILY; METOPROLOL SUCCINATE 25 MG ONCE DAILY IN COMBINATION WITH PROPAFENONE DOSE OF 1
     Route: 065
  7. ACETYLSALICYLIC ACID [Suspect]
     Active Substance: ASPIRIN
     Indication: ANTICOAGULANT THERAPY
     Route: 065
  8. METOPROLOL. [Suspect]
     Active Substance: METOPROLOL
     Indication: ARRHYTHMIA
     Route: 065
  9. AMLODIPINA PLUS LISINOPRIL [Suspect]
     Active Substance: AMLODIPINE BESYLATE\LISINOPRIL
     Indication: ATRIAL FIBRILLATION
     Dosage: ONE TABLET IN THE MORNING AND HALF TABLET IN EVENING
     Route: 065

REACTIONS (9)
  - Dyspnoea [Unknown]
  - Fatigue [Unknown]
  - Drug ineffective [Unknown]
  - Facial asymmetry [Recovered/Resolved]
  - Heart rate irregular [Unknown]
  - Epistaxis [Recovered/Resolved]
  - Speech disorder [Recovered/Resolved]
  - Transient ischaemic attack [Unknown]
  - Muscular weakness [Recovered/Resolved]
